FAERS Safety Report 8797309 (Version 1)
Quarter: 2012Q4

REPORT INFORMATION
  Report Type: 
  Country: US (occurrence: US)
  Receive Date: 20120920
  Receipt Date: 20120920
  Transmission Date: 20130627
  Serious: No
  Sender: FDA-Public Use
  Company Number: US-PFIZER INC-2012200676

PATIENT
  Age: 58 Year
  Sex: Male
  Weight: 106 kg

DRUGS (11)
  1. SOMAVERT [Suspect]
     Indication: ACROMEGALY
     Dosage: 10 mg, daily
  2. PREDNISONE [Concomitant]
     Dosage: 5 mg, daily
  3. LEVOTHYROXINE [Concomitant]
     Indication: HYPOTHYROIDISM
     Dosage: 115 ug, daily
  4. TESTOSTERONE [Concomitant]
     Dosage: 200 mg, every 2 week
     Route: 030
  5. ACETYLSALICYLIC ACID [Concomitant]
     Indication: CARDIAC DISORDER
     Dosage: 81 mg, daily
  6. VITAMIN D3 [Concomitant]
     Indication: VITAMIN D DEFICIENCY
     Dosage: 2000 IU, daily
  7. CRESTOR [Concomitant]
     Indication: HYPERLIPIDAEMIA
     Dosage: 20 mg, daily
  8. ZETIA [Concomitant]
     Indication: HYPERLIPIDAEMIA
     Dosage: 10 mg, daily
  9. VALSARTAN [Concomitant]
     Indication: HYPERTENSION
     Dosage: 150 mg, daily
  10. OSTEO BI-FLEX [Concomitant]
     Indication: ARTHRITIS
     Dosage: UNK
  11. SILDENAFIL [Concomitant]
     Indication: ERECTILE DYSFUNCTION
     Dosage: UNK

REACTIONS (1)
  - Drug ineffective [Unknown]
